FAERS Safety Report 11081355 (Version 1)
Quarter: 2015Q2

REPORT INFORMATION
  Report Type: Report from Study
  Country: US (occurrence: None)
  Receive Date: 20150429
  Receipt Date: 20150429
  Transmission Date: 20150821
  Serious: Yes (Hospitalization)
  Sender: FDA-Public Use
  Company Number: US-001876

PATIENT
  Sex: Female

DRUGS (2)
  1. GATTEX [Suspect]
     Active Substance: TEDUGLUTIDE\WATER
     Indication: SHORT-BOWEL SYNDROME
     Dosage: DF
     Route: 058
  2. SOLUTION FOR PARENTERAL NUTRITION [Concomitant]
     Active Substance: AMINO ACIDS\DEXTROSE\ELECTROLYTES NOS

REACTIONS (2)
  - Body temperature increased [None]
  - Therapy cessation [None]

NARRATIVE: CASE EVENT DATE: 2015
